FAERS Safety Report 5914738-8 (Version None)
Quarter: 2008Q4

REPORT INFORMATION
  Report Type: 
  Country: None (occurrence: None)
  Receive Date: 20081010
  Receipt Date: 20080929
  Transmission Date: 20090506
  Serious: Yes (Hospitalization)
  Sender: FDA-Public Use
  Company Number: US-NOVOPROD-279676

PATIENT
  Sex: Male
  Weight: 88 kg

DRUGS (6)
  1. NOVOSEVEN [Suspect]
     Indication: DRUG USE FOR UNKNOWN INDICATION
     Dosage: 120 UG/KG, 3 DOSES Q2H
     Dates: start: 20080908
  2. NOVOSEVEN [Suspect]
     Dosage: 120 UG/KG, 3 DOSES Q 2H
     Route: 042
     Dates: start: 20080914, end: 20080914
  3. DILAUDID [Concomitant]
     Dosage: 4 MG, 1-2 TABS QD
     Route: 048
     Dates: start: 20080915, end: 20080920
  4. ZESTRIL [Concomitant]
     Indication: HYPERTENSION
     Dosage: 5 MG, QD
     Route: 048
     Dates: start: 20080915
  5. FEIBA [Concomitant]
     Indication: HAEMATURIA
     Dosage: 75 UG/KG, UNK
     Dates: start: 20080914, end: 20080916
  6. FEIBA [Concomitant]
     Dosage: 100 Q 8 H
     Dates: start: 20080916, end: 20080925

REACTIONS (1)
  - RENAL HAEMORRHAGE [None]
